FAERS Safety Report 7044603-7 (Version None)
Quarter: 2010Q4

REPORT INFORMATION
  Report Type: 
  Country: None (occurrence: None)
  Receive Date: 20101014
  Receipt Date: 20101006
  Transmission Date: 20110411
  Serious: Yes (Death)
  Sender: FDA-Public Use
  Company Number: IT-MPIJNJ-2010-05143

PATIENT

DRUGS (7)
  1. VELCADE [Suspect]
     Indication: MULTIPLE MYELOMA
     Dosage: 1.3 MG/M2, CYCLIC
     Route: 042
     Dates: start: 20100906, end: 20100930
  2. DEXAMETHASONE [Suspect]
     Indication: MULTIPLE MYELOMA
     Dosage: 20 MG, UNK
     Route: 042
     Dates: start: 20100906
  3. DURAGESIC-100 [Concomitant]
     Indication: PAIN
     Dosage: 50 UG, UNK
     Route: 062
  4. MEPRAL                             /00661201/ [Concomitant]
     Indication: DYSPEPSIA
     Dosage: 10 MG, UNK
     Route: 048
     Dates: start: 20100801, end: 20101001
  5. SEQUACOR [Concomitant]
     Indication: ESSENTIAL HYPERTENSION
     Dosage: 0.62 MG, UNK
     Route: 048
  6. OMNIC [Concomitant]
     Indication: BENIGN PROSTATIC HYPERPLASIA
     Dosage: 0.4 MG, UNK
     Route: 048
  7. CARDIOASPIRIN [Concomitant]
     Indication: CARDIAC ASSISTANCE DEVICE USER
     Dosage: 100 MG, UNK
     Route: 048

REACTIONS (1)
  - HYPOVOLAEMIC SHOCK [None]
